FAERS Safety Report 10445750 (Version 1)
Quarter: 2014Q3

REPORT INFORMATION
  Report Type: Spontaneous
  Country: US (occurrence: US)
  Receive Date: 20140910
  Receipt Date: 20140910
  Transmission Date: 20150326
  Serious: No
  Sender: FDA-Public Use
  Company Number: US-PFIZER INC-2014250378

PATIENT
  Age: 75 Year
  Sex: Female
  Weight: 83.9 kg

DRUGS (1)
  1. LIPITOR [Suspect]
     Active Substance: ATORVASTATIN CALCIUM
     Indication: BLOOD CHOLESTEROL INCREASED
     Dosage: UNK,1X/DAY
     Route: 048
     Dates: end: 201012

REACTIONS (2)
  - Blood glucose decreased [Unknown]
  - Neuropathy peripheral [Unknown]
